FAERS Safety Report 7935027-6 (Version None)
Quarter: 2011Q4

REPORT INFORMATION
  Report Type: 
  Country: None (occurrence: None)
  Receive Date: 20111122
  Receipt Date: 20111117
  Transmission Date: 20120403
  Serious: Yes (Life-Threatening)
  Sender: FDA-Public Use
  Company Number: US-ASTRAZENECA-2010SE55209

PATIENT
  Age: 62 Year
  Sex: Female
  Weight: 65.8 kg

DRUGS (4)
  1. SEROQUEL [Suspect]
     Route: 048
  2. SEROQUEL [Suspect]
     Indication: DEPRESSION
     Route: 048
     Dates: start: 20080101
  3. PRISTIQ [Concomitant]
     Indication: DEPRESSION
     Route: 048
  4. LAMOTRIGINE [Concomitant]
     Route: 048

REACTIONS (3)
  - WRONG TECHNIQUE IN DRUG USAGE PROCESS [None]
  - FEAR OF DEATH [None]
  - SPEECH DISORDER [None]
